FAERS Safety Report 5661946-X (Version None)
Quarter: 2008Q1

REPORT INFORMATION
  Report Type: 
  Country: None (occurrence: None)
  Receive Date: 20080312
  Receipt Date: 20080301
  Transmission Date: 20080703
  Serious: Yes (Other)
  Sender: FDA-Public Use
  Company Number: US-ABBOTT-08P-163-0440542-00

PATIENT
  Sex: Female

DRUGS (7)
  1. HUMIRA [Suspect]
     Indication: RHEUMATOID ARTHRITIS
     Route: 058
     Dates: start: 20050101, end: 20080204
  2. HUMIRA [Suspect]
     Dates: start: 20080219, end: 20080227
  3. METHOTREXATE [Concomitant]
     Indication: RHEUMATOID ARTHRITIS
  4. PREDNISONE [Concomitant]
     Indication: RHEUMATOID ARTHRITIS
  5. FOLIC ACID [Concomitant]
     Indication: RHEUMATOID ARTHRITIS
  6. PROVELLA-14 [Concomitant]
     Indication: DRUG USE FOR UNKNOWN INDICATION
  7. LANSOPRAZOLE [Concomitant]
     Indication: DRUG USE FOR UNKNOWN INDICATION

REACTIONS (2)
  - BUNION [None]
  - IMPAIRED HEALING [None]
